FAERS Safety Report 20221626 (Version 1)
Quarter: 2021Q4

REPORT INFORMATION
  Report Type: Spontaneous
  Country: US (occurrence: None)
  Receive Date: 20211222
  Receipt Date: 20211222
  Transmission Date: 20220303
  Serious: Yes (Other)
  Sender: FDA-Public Use
  Company Number: None

PATIENT
  Age: 25 Year
  Sex: Female
  Weight: 77.11 kg

DRUGS (4)
  1. LAMICTAL [Suspect]
     Active Substance: LAMOTRIGINE
     Indication: Bipolar I disorder
     Dosage: FREQUENCY : TWICE A DAY;?
     Route: 048
     Dates: start: 20190509
  2. LAMICTAL [Suspect]
     Active Substance: LAMOTRIGINE
     Indication: Major depression
  3. LAMICTAL [Suspect]
     Active Substance: LAMOTRIGINE
     Indication: Seizure
  4. WELLBUTRIN 300 mg [Concomitant]

REACTIONS (2)
  - Product substitution issue [None]
  - Treatment failure [None]

NARRATIVE: CASE EVENT DATE: 20191109
